FAERS Safety Report 11936118 (Version 1)
Quarter: 2016Q1

REPORT INFORMATION
  Report Type: Report from Study
  Country: US (occurrence: US)
  Receive Date: 20160121
  Receipt Date: 20160121
  Transmission Date: 20160526
  Serious: Yes (Other)
  Sender: FDA-Public Use
  Company Number: US-AMGEN-USASL2015122685

PATIENT
  Age: 57 Year
  Sex: Female

DRUGS (6)
  1. KYPROLIS [Suspect]
     Active Substance: CARFILZOMIB
     Indication: PLASMA CELL MYELOMA
     Dosage: UNK
     Route: 065
  2. LEVAQUIN [Concomitant]
     Active Substance: LEVOFLOXACIN
     Dosage: UNK
  3. KYPROLIS [Suspect]
     Active Substance: CARFILZOMIB
     Dosage: DOSES ON WEEKS 1 AND 2 AND THEN OFF FOR WEEK 3
     Route: 065
  4. NEUPOGEN [Suspect]
     Active Substance: FILGRASTIM
     Indication: WHITE BLOOD CELL COUNT
     Dosage: UNK
     Route: 065
     Dates: start: 20151105
  5. REVLIMID [Concomitant]
     Active Substance: LENALIDOMIDE
     Dosage: 15 MG, QD (DOSED 21 DAYS ON, 7 DAYS OFF)
     Route: 048
  6. DEXAMETHASONE. [Concomitant]
     Active Substance: DEXAMETHASONE
     Dosage: UNK

REACTIONS (12)
  - Plasma cell myeloma [Unknown]
  - Tooth disorder [Unknown]
  - Fatigue [Unknown]
  - Protein urine present [Unknown]
  - Platelet count decreased [Unknown]
  - White blood cell count increased [Unknown]
  - Blood potassium abnormal [Unknown]
  - White blood cell count decreased [Recovering/Resolving]
  - Blood urine present [Unknown]
  - Pyrexia [Unknown]
  - Hypertension [Unknown]
  - Malaise [Unknown]

NARRATIVE: CASE EVENT DATE: 20151026
